FAERS Safety Report 7718533-9 (Version None)
Quarter: 2011Q3

REPORT INFORMATION
  Report Type: 
  Country: None (occurrence: None)
  Receive Date: 20110830
  Receipt Date: 20110825
  Transmission Date: 20111222
  Serious: No
  Sender: FDA-Public Use
  Company Number: US-TEVA-298231USA

PATIENT
  Sex: Female
  Weight: 61.744 kg

DRUGS (2)
  1. AZILECT [Suspect]
     Indication: PARKINSON'S DISEASE
     Dosage: .5 MILLIGRAM;
     Route: 048
     Dates: start: 20110815
  2. ALPRAZOLAM [Concomitant]
     Indication: ANXIETY
     Dosage: 1.5 MILLIGRAM;
     Route: 048
     Dates: start: 20110801

REACTIONS (3)
  - SEXUAL DYSFUNCTION [None]
  - INSOMNIA [None]
  - ANXIETY [None]
